FAERS Safety Report 6395353-1 (Version None)
Quarter: 2009Q4

REPORT INFORMATION
  Report Type: 
  Country: None (occurrence: None)
  Receive Date: 20091009
  Receipt Date: 20091002
  Transmission Date: 20100525
  Serious: Yes (Hospitalization)
  Sender: FDA-Public Use
  Company Number: US-GENENTECH-291559

PATIENT

DRUGS (15)
  1. BLINDED BEVACIZUMAB [Suspect]
     Indication: BREAST CANCER
     Dosage: 10 MG/KG, DAY 1
     Route: 042
  2. CYCLOPHOSPHAMIDE [Suspect]
     Indication: BREAST CANCER
     Dosage: 10 MG/KG, DAY 1
     Route: 042
  3. DOXORUBICIN HCL [Suspect]
     Indication: BREAST CANCER
     Dosage: 10 MG/KG, DAY 1
     Route: 042
  4. BLINDED PACLITAXEL [Suspect]
     Indication: BREAST CANCER
     Dosage: 10 MG/KG, DAY 1
     Route: 042
  5. BLINDED PLACEBO [Suspect]
     Indication: BREAST CANCER
     Dosage: 10 MG/KG, DAY 1
     Route: 042
  6. BLINDED BEVACIZUMAB [Suspect]
     Dosage: 15 MG/KG, DAY 1
     Route: 042
  7. CYCLOPHOSPHAMIDE [Suspect]
     Dosage: 15 MG/KG, DAY 1
     Route: 042
  8. DOXORUBICIN HCL [Suspect]
     Dosage: 15 MG/KG, DAY 1
     Route: 042
  9. BLINDED PACLITAXEL [Suspect]
     Dosage: 15 MG/KG, DAY 1
     Route: 042
  10. BLINDED PLACEBO [Suspect]
     Dosage: 15 MG/KG, DAY 1
     Route: 042
  11. DOXORUBICIN HCL [Suspect]
     Indication: BREAST CANCER
     Dosage: 60 MG/M2, DAY 1, IVP
     Route: 042
  12. CYCLOPHOSPHAMIDE [Suspect]
     Indication: BREAST CANCER
     Dosage: 600 MG/M2, DAY 1
     Route: 042
  13. NEUPOGEN [Suspect]
     Indication: BREAST CANCER
     Dosage: 5 MCG/KG, DAYS 2-11
     Route: 058
  14. PACLITAXEL [Suspect]
     Indication: BREAST CANCER
     Dosage: 80 MG/M2, DAYS1,8,15
     Route: 042
  15. ARIMIDEX [Concomitant]
     Indication: HORMONE REPLACEMENT THERAPY
     Dosage: UNK
     Dates: start: 20090720

REACTIONS (1)
  - SPEECH DISORDER [None]
